FAERS Safety Report 15518732 (Version 3)
Quarter: 2022Q2

REPORT INFORMATION
  Report Type: Spontaneous
  Country: JP (occurrence: JP)
  Receive Date: 20181017
  Receipt Date: 20220623
  Transmission Date: 20220721
  Serious: Yes (Hospitalization, Other)
  Sender: FDA-Public Use
  Company Number: JP-SHIRE-JP201839287AA

PATIENT
  Age: 47 Year
  Sex: Female

DRUGS (4)
  1. AGRYLIN [Suspect]
     Active Substance: ANAGRELIDE HYDROCHLORIDE
     Indication: Essential thrombocythaemia
     Dosage: 0.5 MG/DAY
     Route: 048
  2. AGRYLIN [Suspect]
     Active Substance: ANAGRELIDE HYDROCHLORIDE
     Dosage: 1.5 MG/DAY
     Route: 048
  3. ASPIRIN [Suspect]
     Active Substance: ASPIRIN
     Indication: Cerebral infarction
     Dosage: 100 MG/DAY
     Route: 048
  4. ASPIRIN [Suspect]
     Active Substance: ASPIRIN
     Indication: Essential thrombocythaemia
     Dosage: 100 MG/DAY
     Route: 048

REACTIONS (5)
  - Subarachnoid haemorrhage [Recovering/Resolving]
  - Cerebral infarction [Recovering/Resolving]
  - Vertebral artery thrombosis [Recovering/Resolving]
  - Intracranial artery dissection [Recovering/Resolving]
  - Acquired Von Willebrand^s disease [Unknown]
